FAERS Safety Report 15454276 (Version 5)
Quarter: 2020Q1

REPORT INFORMATION
  Report Type: Report from Study
  Country: BR (occurrence: BR)
  Receive Date: 20181002
  Receipt Date: 20200110
  Transmission Date: 20200409
  Serious: Yes (Other)
  Sender: FDA-Public Use
  Company Number: BR-BRISTOL-MYERS SQUIBB COMPANY-BMS-2018-088670

PATIENT
  Age: 76 Year
  Sex: Female

DRUGS (1)
  1. ABATACEPT [Suspect]
     Active Substance: ABATACEPT
     Indication: RHEUMATOID ARTHRITIS
     Dosage: 750 MILLIGRAM, QMO
     Route: 042

REACTIONS (6)
  - Varicose vein [Recovered/Resolved]
  - Off label use [Unknown]
  - Eye disorder [Unknown]
  - Influenza [Recovered/Resolved]
  - Joint swelling [Unknown]
  - Chondropathy [Recovered/Resolved]

NARRATIVE: CASE EVENT DATE: 20180903
